FAERS Safety Report 9742600 (Version 1)
Quarter: 2013Q4

REPORT INFORMATION
  Report Type: Spontaneous
  Country: US (occurrence: US)
  Receive Date: 20131210
  Receipt Date: 20131210
  Transmission Date: 20140711
  Serious: No
  Sender: FDA-Public Use
  Company Number: US-GILEAD-2009-0024590

PATIENT
  Sex: Female
  Weight: 64.86 kg

DRUGS (6)
  1. LETAIRIS [Suspect]
     Indication: PULMONARY ARTERIAL HYPERTENSION
     Route: 048
     Dates: start: 20090929
  2. COREG [Concomitant]
  3. RESTASIS [Concomitant]
  4. SYMBICORT [Concomitant]
  5. CALCIUM + D [Concomitant]
  6. B-12 [Concomitant]

REACTIONS (2)
  - Nasal congestion [Unknown]
  - Dyspnoea [Unknown]
